FAERS Safety Report 8703946 (Version 3)
Quarter: 2012Q4

REPORT INFORMATION
  Report Type: 
  Country: US (occurrence: US)
  Receive Date: 20120803
  Receipt Date: 20121002
  Transmission Date: 20130627
  Serious: Yes (Hospitalization)
  Sender: FDA-Public Use
  Company Number: US-JNJFOC-20120800977

PATIENT
  Age: 14 None
  Sex: Male
  Weight: 122.02 kg

DRUGS (10)
  1. INVEGA SUSTENNA [Suspect]
     Indication: PSYCHOTIC DISORDER
     Route: 030
     Dates: start: 201207
  2. INVEGA SUSTENNA [Suspect]
     Indication: BIPOLAR DISORDER
     Route: 030
     Dates: start: 201207
  3. SERTRALINE [Suspect]
     Indication: PSYCHOTIC DISORDER
     Route: 065
     Dates: start: 201201
  4. SERTRALINE [Suspect]
     Indication: BIPOLAR DISORDER
     Route: 065
     Dates: start: 201201
  5. TOPAMAX [Suspect]
     Indication: PSYCHOTIC DISORDER
     Route: 065
     Dates: start: 201201
  6. TOPAMAX [Suspect]
     Indication: BIPOLAR DISORDER
     Route: 065
     Dates: start: 201201
  7. SAPHRIS [Suspect]
     Indication: PSYCHOTIC DISORDER
     Dosage: 5-10 mg
     Route: 065
     Dates: start: 201207
  8. SAPHRIS [Suspect]
     Indication: BIPOLAR DISORDER
     Dosage: 5-10 mg
     Route: 065
     Dates: start: 201207
  9. WELLBUTRIN [Suspect]
     Indication: PSYCHOTIC DISORDER
     Dosage: 300-450 mg
     Route: 048
     Dates: start: 201011
  10. WELLBUTRIN [Suspect]
     Indication: BIPOLAR DISORDER
     Dosage: 300-450 mg
     Route: 048
     Dates: start: 201011

REACTIONS (3)
  - Hospitalisation [Recovered/Resolved]
  - Treatment noncompliance [Unknown]
  - Drug ineffective [Unknown]
